FAERS Safety Report 7013707-7 (Version None)
Quarter: 2010Q3

REPORT INFORMATION
  Report Type: 
  Country: None (occurrence: None)
  Receive Date: 20100924
  Receipt Date: 20100921
  Transmission Date: 20110219
  Serious: Yes (Other)
  Sender: FDA-Public Use
  Company Number: US-TEVA-249207USA

PATIENT
  Sex: Female

DRUGS (5)
  1. METHOTREXATE SOLUTION FOR INJECTION, 25 MG/ML [Suspect]
     Dates: start: 20041101, end: 20050801
  2. ADALIMUMAB [Suspect]
     Indication: PSORIASIS
     Dosage: 40 MG/0.8 ML
     Dates: start: 20060101, end: 20100726
  3. CYCLOSPORINE [Suspect]
     Dates: start: 20020301, end: 20040101
  4. ETANERCEPT [Suspect]
     Dates: start: 20040401, end: 20041101
  5. EFALIZUMAB [Suspect]
     Dates: end: 20051001

REACTIONS (2)
  - THYROID CANCER [None]
  - THYROID NEOPLASM [None]
